FAERS Safety Report 14762416 (Version 1)
Quarter: 2018Q2

REPORT INFORMATION
  Report Type: Spontaneous
  Country: US (occurrence: US)
  Receive Date: 20180416
  Receipt Date: 20180416
  Transmission Date: 20180711
  Serious: No
  Sender: FDA-Public Use
  Company Number: US-LUPIN PHARMACEUTICALS INC.-2018-02479

PATIENT
  Sex: Female

DRUGS (1)
  1. AMABELZ [Suspect]
     Active Substance: ESTRADIOL\NORETHINDRONE
     Indication: HORMONE REPLACEMENT THERAPY
     Dosage: UNK
     Route: 065

REACTIONS (4)
  - Metrorrhagia [Unknown]
  - Influenza [Unknown]
  - Product use in unapproved indication [Unknown]
  - Drug dose omission [Unknown]
